FAERS Safety Report 8488418-1 (Version None)
Quarter: 2012Q3

REPORT INFORMATION
  Report Type: 
  Country: None (occurrence: None)
  Receive Date: 20120705
  Receipt Date: 20120628
  Transmission Date: 20120928
  Serious: Yes (Hospitalization)
  Sender: FDA-Public Use
  Company Number: NO-B.I. PHARMACEUTICALS,INC./RIDGEFIELD-2012-EU-03338EU

PATIENT
  Sex: Male
  Weight: 124 kg

DRUGS (3)
  1. ASPIRIN [Concomitant]
     Indication: HYPERTENSION
     Dosage: 75 MG
     Route: 048
     Dates: start: 20120620
  2. DABIGATRAN [Suspect]
     Indication: HEART VALVE REPLACEMENT
     Dosage: 600 MG
     Route: 048
     Dates: start: 20120623
  3. ASPIRIN [Concomitant]
     Indication: HYPERCHOLESTEROLAEMIA

REACTIONS (1)
  - PERICARDIAL EFFUSION [None]
